FAERS Safety Report 21599650 (Version 1)
Quarter: 2022Q4

REPORT INFORMATION
  Report Type: Spontaneous
  Country: US (occurrence: None)
  Receive Date: 20221115
  Receipt Date: 20221115
  Transmission Date: 20230113
  Serious: Yes (Hospitalization)
  Sender: FDA-Public Use
  Company Number: None

PATIENT
  Age: 88 Year
  Sex: Female
  Weight: 71.89 kg

DRUGS (11)
  1. ARANESP [Suspect]
     Active Substance: DARBEPOETIN ALFA
     Indication: B-cell small lymphocytic lymphoma
     Dosage: OTHER STRENGTH : 200MCG/0.4ML;?FREQUENCY : EVERY THREE WEEKS;?
     Route: 058
     Dates: start: 202204
  2. VITAMIN C [Concomitant]
     Active Substance: ASCORBIC ACID
  3. ELIQUIS [Concomitant]
     Active Substance: APIXABAN
  4. GABAPENTIN [Concomitant]
     Active Substance: GABAPENTIN
  5. LEXAPRO [Concomitant]
     Active Substance: ESCITALOPRAM OXALATE
  6. LIDOCAINE [Concomitant]
     Active Substance: LIDOCAINE
  7. NIFEDIPINE [Concomitant]
     Active Substance: NIFEDIPINE
  8. OXYBUTYNIN [Concomitant]
     Active Substance: OXYBUTYNIN
  9. PREDNISONE [Concomitant]
     Active Substance: PREDNISONE
  10. PROAIR HFA [Concomitant]
     Active Substance: ALBUTEROL SULFATE
  11. PROTONIX [Concomitant]
     Active Substance: PANTOPRAZOLE SODIUM

REACTIONS (2)
  - Hospitalisation [None]
  - Therapy interrupted [None]
